FAERS Safety Report 8853446 (Version 2)
Quarter: 2012Q4

REPORT INFORMATION
  Report Type: 
  Country: JP (occurrence: JP)
  Receive Date: 20121022
  Receipt Date: 20121212
  Transmission Date: 20130627
  Serious: Yes (Life-Threatening, Hospitalization)
  Sender: FDA-Public Use
  Company Number: JP-GLAXOSMITHKLINE-B0838913A

PATIENT
  Age: 42 Year
  Sex: Female

DRUGS (6)
  1. ZEFIX [Suspect]
     Indication: HEPATITIS B
     Dosage: 200MG Per day
     Route: 048
     Dates: start: 20120722, end: 20120723
  2. SOL-MELCORT [Concomitant]
     Dosage: 1000MG Per day
     Route: 042
     Dates: start: 20120722
  3. ANTHROBIN P [Concomitant]
     Indication: DISSEMINATED INTRAVASCULAR COAGULATION
     Dosage: 1500IU Per day
     Route: 042
     Dates: start: 20120723
  4. FINIBAX [Concomitant]
     Indication: INFECTION PROPHYLAXIS
     Dosage: .25G Twice per day
     Route: 042
     Dates: start: 20120723
  5. RECOMODULIN [Concomitant]
     Indication: DISSEMINATED INTRAVASCULAR COAGULATION
     Dosage: 6400IU Per day
     Route: 042
     Dates: start: 20120723
  6. NAFAMOSTAT [Concomitant]
     Dosage: 50MG Twice per day
     Dates: start: 20120722

REACTIONS (16)
  - Pancreatitis acute [Recovered/Resolved]
  - Ascites [Unknown]
  - Chest pain [Unknown]
  - Abdominal pain [Unknown]
  - Pancreatic enlargement [Unknown]
  - Amylase increased [Unknown]
  - Lipase increased [Unknown]
  - Pyrexia [Unknown]
  - Eosinophil count increased [Unknown]
  - Constipation [Unknown]
  - Pancreatic steatosis [Unknown]
  - Fluid retention [Unknown]
  - Pleural effusion [Unknown]
  - Atelectasis [Unknown]
  - Computerised tomogram abnormal [Unknown]
  - Kidney enlargement [Unknown]
